FAERS Safety Report 14370080 (Version 1)
Quarter: 2018Q1

REPORT INFORMATION
  Report Type: Spontaneous
  Country: US (occurrence: US)
  Receive Date: 20180110
  Receipt Date: 20180110
  Transmission Date: 20180509
  Serious: No
  Sender: FDA-Public Use
  Company Number: US-APOTEX-2017AP008973

PATIENT
  Age: 7 Year
  Sex: Male

DRUGS (1)
  1. LITHIUM CARBONATE. [Suspect]
     Active Substance: LITHIUM CARBONATE
     Indication: ORGANIC BRAIN SYNDROME
     Dosage: 600 MG, QD TOTAL DAILY DOSE
     Route: 065

REACTIONS (2)
  - Polyuria [Recovered/Resolved]
  - Enuresis [Recovered/Resolved]
